FAERS Safety Report 6691493-8 (Version None)
Quarter: 2010Q2

REPORT INFORMATION
  Report Type: 
  Country: None (occurrence: None)
  Receive Date: 20100414
  Receipt Date: 20090413
  Transmission Date: 20101027
  Serious: Yes (Hospitalization)
  Sender: FDA-Public Use
  Company Number: 09-142

PATIENT
  Age: 69 Year
  Sex: Female

DRUGS (2)
  1. ALEVE [Suspect]
     Indication: ARTHRALGIA
     Dosage: 220 MG, DAILY, ORAL
     Route: 048
     Dates: start: 20090324
  2. ALEVE [Suspect]
     Indication: HEADACHE
     Dosage: 220 MG, DAILY, ORAL
     Route: 048
     Dates: start: 20090324

REACTIONS (3)
  - ERYTHEMA [None]
  - PRURITUS [None]
  - SWOLLEN TONGUE [None]
